FAERS Safety Report 8972544 (Version 4)
Quarter: 2013Q2

REPORT INFORMATION
  Report Type: Report from Study
  Country: JP (occurrence: JP)
  Receive Date: 20121219
  Receipt Date: 20130415
  Transmission Date: 20140414
  Serious: Yes (Hospitalization)
  Sender: FDA-Public Use
  Company Number: JP-PFIZER INC-2012310465

PATIENT
  Age: 43 Year
  Sex: Female
  Weight: 62 kg

DRUGS (7)
  1. TOFACITINIB CITRATE [Suspect]
     Indication: RHEUMATOID ARTHRITIS
     Dosage: 5 MG, 2X/DAY
     Route: 048
     Dates: start: 20100306, end: 20120915
  2. TOFACITINIB CITRATE [Suspect]
     Dosage: 5MG IN MORNING, 10 MG AT NIGHT
     Route: 048
     Dates: start: 20120915, end: 20120915
  3. TOFACITINIB CITRATE [Suspect]
     Dosage: 10 MG, 2X/DAY
     Route: 048
     Dates: start: 20120916, end: 20121208
  4. PREDNISOLONE [Concomitant]
     Indication: RHEUMATOID ARTHRITIS
     Dosage: 2.5 MG, 1X/DAY (5MG TABLETS)
     Route: 048
     Dates: start: 20100821
  5. INTEBAN [Concomitant]
     Indication: RHEUMATOID ARTHRITIS
     Dosage: 25 MG, 2X/DAY
     Route: 048
  6. GASPORT [Concomitant]
     Indication: GASTRITIS PROPHYLAXIS
     Dosage: 10 MG, 2X/DAY
  7. INTENURCE [Concomitant]
     Indication: RHEUMATOID ARTHRITIS
     Dosage: 70 MG
     Route: 003

REACTIONS (2)
  - Skin ulcer [Recovered/Resolved]
  - Cellulitis [Recovered/Resolved]
